FAERS Safety Report 16749133 (Version 1)
Quarter: 2019Q3

REPORT INFORMATION
  Report Type: Other
  Country: GB (occurrence: GB)
  Receive Date: 20190828
  Receipt Date: 20190828
  Transmission Date: 20191005
  Serious: Yes (Hospitalization, Disabling)
  Sender: FDA-Public Use
  Company Number: GB-EMCURE PHARMACEUTICALS LTD-2019-EPL-0602

PATIENT
  Age: 23 Year
  Sex: Female
  Weight: 61 kg

DRUGS (12)
  1. DIAZEPAM. [Concomitant]
     Active Substance: DIAZEPAM
  2. NIFEDIPINE. [Suspect]
     Active Substance: NIFEDIPINE
     Indication: POSTURAL ORTHOSTATIC TACHYCARDIA SYNDROME
     Dosage: 10 MILLIGRAM, 1 DAY, IN THE MORNING
     Route: 048
     Dates: start: 20190723, end: 20190731
  3. NAPROXEN. [Concomitant]
     Active Substance: NAPROXEN
  4. ZOMORPH [Concomitant]
     Active Substance: MORPHINE SULFATE
  5. RABEPRAZOLE [Concomitant]
     Active Substance: RABEPRAZOLE
  6. PARACETAMOL [Concomitant]
     Active Substance: ACETAMINOPHEN
  7. IVABRADINE [Concomitant]
     Active Substance: IVABRADINE
  8. FEXOFENADINE [Concomitant]
     Active Substance: FEXOFENADINE HYDROCHLORIDE
  9. ORAMORPH [Concomitant]
     Active Substance: MORPHINE SULFATE
  10. PREGABALIN. [Concomitant]
     Active Substance: PREGABALIN
  11. AMITRIPTYLINE [Concomitant]
     Active Substance: AMITRIPTYLINE
  12. DOMPERIDONE [Concomitant]
     Active Substance: DOMPERIDONE

REACTIONS (2)
  - Joint contracture [Recovering/Resolving]
  - Arthralgia [Recovering/Resolving]
